FAERS Safety Report 8811537 (Version 3)
Quarter: 2012Q4

REPORT INFORMATION
  Report Type: 
  Country: PT (occurrence: PT)
  Receive Date: 20120927
  Receipt Date: 20121018
  Transmission Date: 20130627
  Serious: Yes (Other)
  Sender: FDA-Public Use
  Company Number: PT-JNJFOC-20120701443

PATIENT
  Sex: Female

DRUGS (4)
  1. INTELENCE [Suspect]
     Indication: HIV INFECTION
     Dosage: course-1
     Route: 065
  2. PREZISTA [Suspect]
     Indication: HIV INFECTION
     Dosage: course-1
     Route: 065
  3. NORVIR [Concomitant]
     Indication: HIV INFECTION
     Dosage: course-1
     Route: 065
  4. TRUVADA [Concomitant]
     Indication: HIV INFECTION
     Dosage: course- 1
     Route: 065

REACTIONS (2)
  - Abortion spontaneous [Recovered/Resolved]
  - Exposure during pregnancy [Recovered/Resolved]
